FAERS Safety Report 9220242 (Version 1)
Quarter: 2013Q1

REPORT INFORMATION
  Report Type: Spontaneous
  Country: US (occurrence: None)
  Receive Date: 20120831
  Receipt Date: 20120831
  Transmission Date: 20140127
  Serious: No
  Sender: FDA-Public Use
  Company Number: 1000031470

PATIENT
  Age: 72 Year
  Sex: Male

DRUGS (7)
  1. DALIRESP (ROFLUMILAST) (500 MICROGRAM, TABLETS) [Suspect]
     Indication: EMPHYSEMA
     Route: 048
     Dates: start: 2012, end: 2012
  2. SPIRIVA (TIOTROPIUM BROMIDE) TIOTROPIUM BROMIDE) [Concomitant]
  3. ALBUTEROL (ALBUTEROL) (ALBUTEROL) [Concomitant]
  4. BROVANA (ARFORMOTEROL TARTRATE) (ARFORMOTEROL TARTRATE) [Concomitant]
  5. PERFOROMIST (FORMOTEROL FUMARATE) (FORMOTEROL FUMARATE) [Concomitant]
  6. LISINOPRIL (LILSINOPRIL) (LISINOPRIL) [Concomitant]
  7. FISH OIL (FISH OIL) (FISH OIL) [Concomitant]

REACTIONS (2)
  - Nausea [None]
  - Off label use [None]
